FAERS Safety Report 7500752-8 (Version None)
Quarter: 2011Q2

REPORT INFORMATION
  Report Type: 
  Country: None (occurrence: None)
  Receive Date: 20110524
  Receipt Date: 20110516
  Transmission Date: 20111010
  Serious: Yes (Hospitalization)
  Sender: FDA-Public Use
  Company Number: DE-BRISTOL-MYERS SQUIBB COMPANY-15764616

PATIENT
  Age: 50 Year
  Sex: Male

DRUGS (12)
  1. GRANISETRON HCL [Concomitant]
     Dosage: 3MG 1 AMPULE IN 100ML NACL
     Route: 042
  2. ARIXTRA [Concomitant]
     Route: 058
  3. RAMIPRIL [Concomitant]
     Route: 048
  4. TPN ELECTROLYTES IN PLASTIC CONTAINER [Concomitant]
     Route: 042
  5. GEMCITABINE [Suspect]
     Indication: NON-SMALL CELL LUNG CANCER
     Dosage: LAST INF ON 02MAY2011
     Route: 042
     Dates: start: 20110401
  6. PANTOPRAZOLE [Concomitant]
     Route: 048
  7. CETUXIMAB [Suspect]
     Indication: NON-SMALL CELL LUNG CANCER
     Dosage: LAST INF ON 09MAY2011
     Route: 042
     Dates: start: 20110401
  8. LIPOVENOES [Concomitant]
     Route: 042
  9. DEXAMETHASONE [Concomitant]
     Dosage: 8MG IN 100ML NACL
     Route: 042
  10. METOCLOPRAMIDE [Concomitant]
  11. JONOSTERIL [Concomitant]
     Route: 042
  12. MULTI-VITAMINS [Concomitant]
     Dosage: 1 AMPULE IN 100ML NACL
     Route: 042

REACTIONS (3)
  - LUNG INFILTRATION [None]
  - CONFUSIONAL STATE [None]
  - FATIGUE [None]
